FAERS Safety Report 5123257-0 (Version None)
Quarter: 2006Q4

REPORT INFORMATION
  Report Type: 
  Country: None (occurrence: None)
  Receive Date: 20061009
  Receipt Date: 20061002
  Transmission Date: 20070319
  Serious: Yes (Disabling, Other)
  Sender: FDA-Public Use
  Company Number: US-GLAXOSMITHKLINE-A0622657A

PATIENT
  Sex: Female

DRUGS (3)
  1. AVANDAMET [Suspect]
     Route: 048
     Dates: end: 20061002
  2. AVANDIA [Suspect]
     Route: 048
     Dates: end: 20061002
  3. TOPROL-XL [Concomitant]

REACTIONS (1)
  - DEAFNESS [None]
